FAERS Safety Report 9983455 (Version 1)
Quarter: 2014Q1

REPORT INFORMATION
  Report Type: Spontaneous
  Country: CN (occurrence: CN)
  Receive Date: 20140307
  Receipt Date: 20140307
  Transmission Date: 20141002
  Serious: Yes (Hospitalization)
  Sender: FDA-Public Use
  Company Number: CN-NOVOPROD-401503

PATIENT
  Sex: Female

DRUGS (1)
  1. NOVOLIN 30R PENFILL [Suspect]
     Indication: PRODUCT USED FOR UNKNOWN INDICATION
     Dosage: 28 IU, QD (18IU IN THE MORNING AND 10IU IN THE EVENING)
     Route: 065

REACTIONS (6)
  - Chest discomfort [Unknown]
  - Peripheral coldness [Unknown]
  - Yellow skin [Unknown]
  - Blood pressure systolic increased [Unknown]
  - Product quality issue [Unknown]
  - Blood glucose increased [Unknown]
